FAERS Safety Report 9194380 (Version 1)
Quarter: 2013Q1

REPORT INFORMATION
  Report Type: Spontaneous
  Country: US (occurrence: US)
  Receive Date: 20130327
  Receipt Date: 20130327
  Transmission Date: 20140127
  Serious: No
  Sender: FDA-Public Use
  Company Number: US-ALLERGAN-1203117US

PATIENT
  Age: 57 Year
  Sex: Female

DRUGS (1)
  1. LATISSE 0.03% [Suspect]
     Indication: HYPOTRICHOSIS
     Dosage: 2 GTT, UNK
     Route: 061

REACTIONS (5)
  - Wrong technique in drug usage process [Unknown]
  - Inappropriate schedule of drug administration [Unknown]
  - Madarosis [Recovered/Resolved]
  - Trichorrhexis [Recovered/Resolved]
  - Incorrect dose administered [Unknown]
